FAERS Safety Report 5599605-4 (Version None)
Quarter: 2008Q1

REPORT INFORMATION
  Report Type: 
  Country: None (occurrence: None)
  Receive Date: 20080118
  Receipt Date: 20080103
  Transmission Date: 20080703
  Serious: Yes (Other)
  Sender: FDA-Public Use
  Company Number: ALK_00487)2997

PATIENT
  Sex: Male
  Weight: 86.637 kg

DRUGS (2)
  1. VIVITROL [Suspect]
     Indication: ALCOHOLISM
     Dosage: 380 MG 1 X MONTH INTRAMUSCULAR
     Route: 030
     Dates: start: 20071105, end: 20071123
  2. HYDROCHLOROTHIAZDE [Concomitant]

REACTIONS (10)
  - IMPAIRED HEALING [None]
  - INFLAMMATION [None]
  - INJECTION SITE INDURATION [None]
  - INJECTION SITE NODULE [None]
  - INJECTION SITE PAIN [None]
  - INJECTION SITE VESICLES [None]
  - PAIN [None]
  - SCIATICA [None]
  - WOUND INFECTION STAPHYLOCOCCAL [None]
  - WOUND SECRETION [None]
